FAERS Safety Report 15857362 (Version 1)
Quarter: 2018Q4

REPORT INFORMATION
  Report Type: Spontaneous
  Country: US (occurrence: US)
  Receive Date: 20181228
  Receipt Date: 20181228
  Transmission Date: 20190205
  Serious: No
  Sender: FDA-Public Use
  Company Number: None

PATIENT
  Age: 19 Year
  Sex: Male
  Weight: 74.84 kg

DRUGS (6)
  1. DEPLIN [Concomitant]
     Active Substance: LEVOMEFOLATE CALCIUM
  2. ZINC. [Concomitant]
     Active Substance: ZINC
  3. FISH OIL [Concomitant]
     Active Substance: FISH OIL
  4. ESCITALOPRAM (GENERIC LEXAPRO) 20MG [Suspect]
     Active Substance: ESCITALOPRAM OXALATE
     Indication: ANXIETY
  5. VITAMIN C [Concomitant]
     Active Substance: ASCORBIC ACID
  6. ESCITALOPRAM (GENERIC LEXAPRO) 20MG [Suspect]
     Active Substance: ESCITALOPRAM OXALATE
     Indication: DEPRESSION
     Dosage: ?          QUANTITY:1 DF DOSAGE FORM;?
     Route: 048
     Dates: start: 20181026, end: 20181107

REACTIONS (6)
  - Asthenia [None]
  - Presyncope [None]
  - Sedation [None]
  - Non-24-hour sleep-wake disorder [None]
  - Hypersomnia [None]
  - Malaise [None]

NARRATIVE: CASE EVENT DATE: 20181012
